FAERS Safety Report 20068964 (Version 8)
Quarter: 2022Q1

REPORT INFORMATION
  Report Type: Report from Study
  Country: ES (occurrence: None)
  Receive Date: 20211115
  Receipt Date: 20220317
  Transmission Date: 20220423
  Serious: Yes (Hospitalization)
  Sender: FDA-Public Use
  Company Number: ES-ROCHE-2872612

PATIENT
  Age: 45 Year
  Sex: Female
  Weight: 60.9 kg

DRUGS (33)
  1. ATEZOLIZUMAB [Suspect]
     Active Substance: ATEZOLIZUMAB
     Indication: Triple negative breast cancer
     Dosage: DATE OF MOST RECENT DOSE OF ATEZOLIZUMAB PRIOR TO AE 840 MG :07/JUL/2021 AND 20/JUL/2021
     Route: 041
     Dates: start: 20210415
  2. PACLITAXEL [Suspect]
     Active Substance: PACLITAXEL
     Indication: Triple negative breast cancer
     Dosage: DATE OF MOST RECENT DOSE OF NAB-PACLITAXEL PRIOR TO AE 161: 07/JUL/2021 AND 20/JUL/2021
     Route: 042
     Dates: start: 20210415
  3. GABAPENTIN [Concomitant]
     Active Substance: GABAPENTIN
     Indication: Neuralgia
     Route: 048
     Dates: start: 20210124
  4. LORAZEPAM [Concomitant]
     Active Substance: LORAZEPAM
     Indication: Insomnia
     Route: 048
     Dates: start: 20210420
  5. MOVICOL [Concomitant]
     Active Substance: POLYETHYLENE GLYCOL 3350\POTASSIUM CHLORIDE\SODIUM BICARBONATE\SODIUM CHLORIDE
     Indication: Constipation
     Route: 048
     Dates: start: 20210420
  6. DEXAMETHASONE [Concomitant]
     Active Substance: DEXAMETHASONE
     Indication: Prophylaxis
     Route: 048
     Dates: start: 20210408
  7. AZITHROMYCIN [Concomitant]
     Active Substance: AZITHROMYCIN
     Indication: Respiratory tract infection
     Route: 048
     Dates: start: 20210615, end: 20210618
  8. HUMAN RED BLOOD CELL [Concomitant]
     Active Substance: HUMAN RED BLOOD CELL
     Indication: Anaemia
     Route: 042
     Dates: start: 20210627, end: 20210627
  9. AMOXICILLIN\CLAVULANIC ACID [Concomitant]
     Active Substance: AMOXICILLIN\CLAVULANIC ACID
     Indication: Lower respiratory tract infection
     Dosage: 875/125MG
     Route: 048
     Dates: start: 20210628, end: 20210701
  10. AMOXICILLIN\CLAVULANIC ACID [Concomitant]
     Active Substance: AMOXICILLIN\CLAVULANIC ACID
     Dosage: SOLUTION, ?1G/200MG
     Route: 042
     Dates: start: 20210625, end: 20210628
  11. AMOXICILLIN [Concomitant]
     Active Substance: AMOXICILLIN
     Indication: Lower respiratory tract infection
     Route: 048
     Dates: start: 20210628, end: 20210628
  12. AMOXICILLIN [Concomitant]
     Active Substance: AMOXICILLIN
     Dosage: SOLUTION, DRUG DOSE FIRST ADMINISTERED IS 1 AMPULE
     Route: 042
     Dates: start: 20210625, end: 20210628
  13. METOCLOPRAMIDE [Concomitant]
     Active Substance: METOCLOPRAMIDE
     Indication: Vomiting
     Route: 042
     Dates: start: 20210622, end: 20210623
  14. OMEPRAZOLE [Concomitant]
     Active Substance: OMEPRAZOLE
     Indication: Abdominal pain upper
     Dates: start: 20210516, end: 20210615
  15. OMEPRAZOLE [Concomitant]
     Active Substance: OMEPRAZOLE
     Indication: Prophylaxis
     Dosage: GIVEN FOR PROPHYLAXIS: YES
     Route: 042
     Dates: start: 20210623, end: 20210623
  16. OMEPRAZOLE [Concomitant]
     Active Substance: OMEPRAZOLE
     Indication: Gastrooesophageal reflux disease
     Route: 048
     Dates: start: 20210623, end: 20210627
  17. ONDANSETRON [Concomitant]
     Active Substance: ONDANSETRON
     Indication: Vomiting
     Dosage: GIVEN FOR PROPHYLAXIS: YES
     Route: 048
     Dates: start: 20210610, end: 20210614
  18. ONDANSETRON [Concomitant]
     Active Substance: ONDANSETRON
     Dates: start: 20210706, end: 20210803
  19. ONDANSETRON [Concomitant]
     Active Substance: ONDANSETRON
     Dates: start: 20210803
  20. LEVOSULPIRIDE [Concomitant]
     Active Substance: LEVOSULPIRIDE
     Indication: Nausea
     Route: 048
     Dates: start: 20210518
  21. DEXKETOPROFEN TROMETAMOL [Concomitant]
     Active Substance: DEXKETOPROFEN TROMETAMOL
     Indication: Neuralgia
     Route: 048
     Dates: start: 202102
  22. DEXTROMETHORPHAN [Concomitant]
     Active Substance: DEXTROMETHORPHAN
     Indication: Cough
     Dates: start: 20210804, end: 20210813
  23. LEVOFLOXACIN [Concomitant]
     Active Substance: LEVOFLOXACIN
     Indication: Respiratory tract infection
     Dates: start: 20210527, end: 20210531
  24. ALBUTEROL [Concomitant]
     Active Substance: ALBUTEROL
     Indication: Lower respiratory tract infection
     Route: 055
     Dates: start: 20210624, end: 20210628
  25. MORPHINE [Concomitant]
     Active Substance: MORPHINE
     Indication: Pain in extremity
     Dates: start: 20210626, end: 20210628
  26. OLAPARIB [Concomitant]
     Active Substance: OLAPARIB
     Dosage: FOLLOW-UP CANCER THERAPY
     Dates: start: 20111124
  27. DEXKETOPROFEN [Concomitant]
     Active Substance: DEXKETOPROFEN
     Indication: Neuralgia
     Dates: start: 20210622, end: 20210625
  28. MAGNESIUM CHLORIDE [Concomitant]
     Active Substance: MAGNESIUM CHLORIDE
     Indication: Hypomagnesaemia
     Dates: start: 20210810, end: 20210813
  29. POTASSIUM ASCORBATE [Concomitant]
     Active Substance: POTASSIUM ASCORBATE
     Indication: Hypokalaemia
     Dates: start: 20210811, end: 20210813
  30. FOLIC ACID [Concomitant]
     Active Substance: FOLIC ACID
  31. PIPERACILLIN SODIUM\TAZOBACTAM SODIUM [Concomitant]
     Active Substance: PIPERACILLIN SODIUM\TAZOBACTAM SODIUM
  32. MAGNESIUM CHLORIDE [Concomitant]
     Active Substance: MAGNESIUM CHLORIDE
  33. PREDNISONE [Concomitant]
     Active Substance: PREDNISONE
     Dates: start: 20210819, end: 202111

REACTIONS (1)
  - Tubulointerstitial nephritis [Not Recovered/Not Resolved]

NARRATIVE: CASE EVENT DATE: 20210622
